FAERS Safety Report 16634548 (Version 4)
Quarter: 2019Q3

REPORT INFORMATION
  Report Type: Report from Study
  Country: None (occurrence: US)
  Receive Date: 20190726
  Receipt Date: 20190827
  Transmission Date: 20191004
  Serious: Yes (Other)
  Sender: FDA-Public Use
  Company Number: US-ABBVIE-19K-163-2865954-00

PATIENT
  Age: 62 Year
  Sex: Female

DRUGS (1)
  1. DUOPA [Suspect]
     Active Substance: CARBIDOPA\LEVODOPA
     Indication: PARKINSON^S DISEASE
     Route: 050
     Dates: start: 20190717

REACTIONS (7)
  - Loss of consciousness [Unknown]
  - Dyspnoea [Recovered/Resolved]
  - Seizure [Unknown]
  - Loss of consciousness [Not Recovered/Not Resolved]
  - Injury [Unknown]
  - Fall [Unknown]
  - Seizure [Recovered/Resolved]

NARRATIVE: CASE EVENT DATE: 2019
